FAERS Safety Report 7492565-0 (Version None)
Quarter: 2011Q2

REPORT INFORMATION
  Report Type: 
  Country: None (occurrence: None)
  Receive Date: 20110519
  Receipt Date: 20110506
  Transmission Date: 20111010
  Serious: Yes (Death)
  Sender: FDA-Public Use
  Company Number: CA-BAYER-2011-040327

PATIENT
  Age: 63 Year
  Sex: Female

DRUGS (7)
  1. ENOXAPARIN SODIUM [Suspect]
     Indication: PRODUCT USED FOR UNKNOWN INDICATION
     Dosage: 40 MG, QD
     Route: 058
  2. ZOFRAN [Concomitant]
  3. NAPROXEN SODIUM [Suspect]
     Indication: PRODUCT USED FOR UNKNOWN INDICATION
     Dosage: UNK
     Route: 048
  4. TEMSIROLIMUS [Suspect]
     Indication: PRODUCT USED FOR UNKNOWN INDICATION
     Dosage: 175 MG, OW
     Route: 042
  5. STEMETIL [Concomitant]
  6. PANTOLOC [Concomitant]
  7. IMOVANE [Concomitant]

REACTIONS (9)
  - HYPERTENSION [None]
  - VOMITING [None]
  - INTRAVENTRICULAR HAEMORRHAGE [None]
  - NAUSEA [None]
  - PLATELET DISORDER [None]
  - LOSS OF CONSCIOUSNESS [None]
  - CEREBRAL HAEMATOMA [None]
  - HYDROCEPHALUS [None]
  - HEADACHE [None]
